FAERS Safety Report 12380941 (Version 1)
Quarter: 2016Q2

REPORT INFORMATION
  Report Type: Spontaneous
  Country: US (occurrence: None)
  Receive Date: 20160517
  Receipt Date: 20160517
  Transmission Date: 20160815
  Serious: No
  Sender: FDA-Public Use
  Company Number: None

PATIENT
  Age: 65 Year
  Sex: Female
  Weight: 90.27 kg

DRUGS (15)
  1. MIRAPEX [Concomitant]
     Active Substance: PRAMIPEXOLE DIHYDROCHLORIDE
  2. MOVANTIK [Concomitant]
     Active Substance: NALOXEGOL OXALATE
  3. KLONOPIN [Concomitant]
     Active Substance: CLONAZEPAM
  4. VITAMIN C [Concomitant]
     Active Substance: ASCORBIC ACID
  5. OXYCODONE-ACETOMINOPEHN [Suspect]
     Active Substance: ACETAMINOPHEN\OXYCODONE HYDROCHLORIDE
     Indication: NECK INJURY
     Dosage: 105 TABLET(S) EVERY 4 HOURS TAKEN BY MOUTH
     Route: 048
     Dates: start: 20110501
  6. PROPANOLOL [Concomitant]
     Active Substance: PROPRANOLOL HYDROCHLORIDE
  7. VIT B COMPLEM [Concomitant]
  8. OXYCODONE-ACETOMINOPEHN [Suspect]
     Active Substance: ACETAMINOPHEN\OXYCODONE HYDROCHLORIDE
     Indication: BACK INJURY
     Dosage: 105 TABLET(S) EVERY 4 HOURS TAKEN BY MOUTH
     Route: 048
     Dates: start: 20110501
  9. SYNTHROID [Concomitant]
     Active Substance: LEVOTHYROXINE SODIUM
  10. ASPIIRN [Concomitant]
  11. SOMA [Concomitant]
     Active Substance: CARISOPRODOL
  12. OXYCODONE-ACETOMINOPEHN [Suspect]
     Active Substance: ACETAMINOPHEN\OXYCODONE HYDROCHLORIDE
     Indication: SCIATIC NERVE INJURY
     Dosage: 105 TABLET(S) EVERY 4 HOURS TAKEN BY MOUTH
     Route: 048
     Dates: start: 20110501
  13. CYMBALTA [Concomitant]
     Active Substance: DULOXETINE HYDROCHLORIDE
  14. PERCOCET [Concomitant]
     Active Substance: ACETAMINOPHEN\OXYCODONE HYDROCHLORIDE
  15. ZONEGRAN [Concomitant]
     Active Substance: ZONISAMIDE

REACTIONS (7)
  - Intervertebral disc protrusion [None]
  - Fall [None]
  - Head injury [None]
  - Sciatic nerve injury [None]
  - Facial bones fracture [None]
  - Nightmare [None]
  - Subdural haematoma [None]

NARRATIVE: CASE EVENT DATE: 20160501
